FAERS Safety Report 7467928-X (Version None)
Quarter: 2011Q2

REPORT INFORMATION
  Report Type: 
  Country: None (occurrence: None)
  Receive Date: 20110509
  Receipt Date: 20110217
  Transmission Date: 20111010
  Serious: No
  Sender: FDA-Public Use
  Company Number: US-ALEXION-A201100214

PATIENT
  Sex: Female

DRUGS (5)
  1. EXJADE [Concomitant]
     Dosage: 500 MG, QD
     Route: 048
  2. SOLIRIS [Suspect]
     Dosage: 900 MG, Q2W
     Route: 042
     Dates: start: 20100101
  3. ACYCLOVIR [Concomitant]
     Dosage: 400 MG, QD
     Route: 048
  4. CYCLOSPORINE [Concomitant]
     Dosage: 150 MG, BID
     Route: 048
  5. SOLIRIS [Suspect]
     Indication: PAROXYSMAL NOCTURNAL HAEMOGLOBINURIA
     Dosage: 600 MG, QW X 4 WEEKS
     Route: 042
     Dates: start: 20100326, end: 20100101

REACTIONS (3)
  - CYSTITIS [None]
  - PLATELET COUNT DECREASED [None]
  - HAEMOGLOBIN DECREASED [None]
